FAERS Safety Report 4689491-9 (Version None)
Quarter: 2005Q2

REPORT INFORMATION
  Report Type: 
  Country: None (occurrence: None)
  Receive Date: 20050608
  Receipt Date: 20050224
  Transmission Date: 20051028
  Serious: No
  Sender: FDA-Public Use
  Company Number: 2005-BP-03097BP

PATIENT
  Age: 79 Year
  Sex: Male
  Weight: 76.4 kg

DRUGS (6)
  1. SPIRIVA [Suspect]
     Indication: ASTHMA
     Dosage: 18 MCG (18 MCG, QD), IH
     Route: 055
  2. CRESTOR [Concomitant]
  3. DIOVAN [Concomitant]
  4. NEXIUM [Concomitant]
  5. ALBUTEROL [Concomitant]
  6. VOLTAREN [Concomitant]

REACTIONS (1)
  - GLAUCOMA [None]
